FAERS Safety Report 9064786 (Version 1)
Quarter: 2013Q1

REPORT INFORMATION
  Report Type: Spontaneous
  Country: CA (occurrence: CA)
  Receive Date: 20130130
  Receipt Date: 20130130
  Transmission Date: 20140127
  Serious: Yes (Hospitalization)
  Sender: FDA-Public Use
  Company Number: CA-ROXANE LABORATORIES, INC.-2013-RO-00147RO

PATIENT
  Age: 53 Year
  Sex: Female

DRUGS (1)
  1. LITHIUM CARBONATE [Suspect]
     Indication: BIPOLAR DISORDER

REACTIONS (3)
  - Nephrogenic diabetes insipidus [Unknown]
  - Road traffic accident [Unknown]
  - Subarachnoid haemorrhage [Recovered/Resolved]
